FAERS Safety Report 9344861 (Version 1)
Quarter: 2013Q2

REPORT INFORMATION
  Report Type: Spontaneous
  Country: JP (occurrence: JP)
  Receive Date: 20130612
  Receipt Date: 20130612
  Transmission Date: 20140414
  Serious: Yes (Hospitalization)
  Sender: FDA-Public Use
  Company Number: JP-GLAXOSMITHKLINE-B0897260A

PATIENT
  Age: 59 Year
  Sex: Female

DRUGS (4)
  1. FLOLAN [Suspect]
     Indication: PULMONARY HYPERTENSION
     Route: 042
     Dates: start: 20121024
  2. FLOLAN [Suspect]
     Indication: PULMONARY HYPERTENSION
     Route: 042
  3. VOLIBRIS [Concomitant]
     Indication: PULMONARY HYPERTENSION
     Dosage: 10MG PER DAY
     Route: 048
  4. ADCIRCA [Concomitant]
     Indication: PULMONARY HYPERTENSION
     Dosage: 40MG PER DAY
     Route: 048

REACTIONS (2)
  - Oedema [Recovered/Resolved]
  - Pruritus [Recovering/Resolving]
